FAERS Safety Report 5391536-8 (Version None)
Quarter: 2007Q3

REPORT INFORMATION
  Report Type: 
  Country: None (occurrence: None)
  Receive Date: 20070719
  Receipt Date: 20070309
  Transmission Date: 20080115
  Serious: Yes (Hospitalization, Other)
  Sender: FDA-Public Use
  Company Number: FRWYE029216JUL07

PATIENT
  Sex: Male

DRUGS (4)
  1. RAPAMUNE [Suspect]
     Indication: PROPHYLAXIS AGAINST TRANSPLANT REJECTION
     Route: 048
     Dates: start: 20030210, end: 20030808
  2. CELESTENE [Suspect]
     Indication: PROPHYLAXIS AGAINST TRANSPLANT REJECTION
     Dosage: UNKNOWN
     Route: 048
     Dates: end: 20030808
  3. AMLODIPINE [Concomitant]
     Dosage: UNKNOWN
     Route: 048
     Dates: end: 20030808
  4. AZATHIOPRINE SODIUM [Suspect]
     Dosage: UNKNOWN
     Route: 048
     Dates: end: 20030808

REACTIONS (10)
  - ANAEMIA [None]
  - COMPLICATIONS OF TRANSPLANTED KIDNEY [None]
  - FLUID RETENTION [None]
  - LEUKOPENIA [None]
  - NEUTROPENIA [None]
  - OEDEMA PERIPHERAL [None]
  - RENAL LYMPHOCELE [None]
  - STENOSIS OF VESICOURETHRAL ANASTOMOSIS [None]
  - THROMBOCYTOPENIA [None]
  - URINARY TRACT INFECTION PSEUDOMONAL [None]
